FAERS Safety Report 18704834 (Version 1)
Quarter: 2021Q1

REPORT INFORMATION
  Report Type: Report from Study
  Country: US (occurrence: US)
  Receive Date: 20210106
  Receipt Date: 20210106
  Transmission Date: 20210419
  Serious: Yes (Hospitalization, Other)
  Sender: FDA-Public Use
  Company Number: US-GILEAD-2020-0511060

PATIENT
  Sex: Female

DRUGS (17)
  1. TOBRAMYCIN. [Suspect]
     Active Substance: TOBRAMYCIN
     Indication: PSEUDOMONAS INFECTION
  2. EPIPEN [Concomitant]
     Active Substance: EPINEPHRINE
  3. ALBUTEROL SULFATE. [Concomitant]
     Active Substance: ALBUTEROL SULFATE
  4. MELATONIN [Concomitant]
     Active Substance: MELATONIN
  5. PERFOROMIST [Concomitant]
     Active Substance: FORMOTEROL FUMARATE DIHYDRATE
  6. AZTREONAM LYSINE [Suspect]
     Active Substance: AZTREONAM LYSINE
     Indication: BURKHOLDERIA MALLEI INFECTION
  7. TOBRAMYCIN. [Suspect]
     Active Substance: TOBRAMYCIN
     Indication: BURKHOLDERIA MALLEI INFECTION
     Dosage: 300 MG, BID, 28 DAYS ON AND 28 DAYS OFF
     Route: 055
     Dates: start: 20160321
  8. AZTREONAM LYSINE [Suspect]
     Active Substance: AZTREONAM LYSINE
     Indication: PSEUDOMONAS INFECTION
     Dosage: 75 MG, TID, 28 DAYS ON AND 28 DAYS OFF
     Route: 055
  9. CYMBALTA [Concomitant]
     Active Substance: DULOXETINE HYDROCHLORIDE
  10. TYLENOL [Concomitant]
     Active Substance: ACETAMINOPHEN
  11. AZITHROMYCIN ANHYDROUS. [Concomitant]
     Active Substance: AZITHROMYCIN ANHYDROUS
  12. GABAPENTIN. [Concomitant]
     Active Substance: GABAPENTIN
  13. VITAMIN D NOS [Concomitant]
     Active Substance: VITAMIN D NOS
  14. SINGULAIR [Concomitant]
     Active Substance: MONTELUKAST SODIUM
  15. PULMICORT TURBUHALER [Concomitant]
     Active Substance: BUDESONIDE
  16. PROTONIX [OMEPRAZOLE] [Concomitant]
     Active Substance: OMEPRAZOLE
  17. FLUCONAZOLE. [Concomitant]
     Active Substance: FLUCONAZOLE

REACTIONS (3)
  - Hypersensitivity [Unknown]
  - Pneumonia [Unknown]
  - Off label use [Not Recovered/Not Resolved]
